FAERS Safety Report 5265422-8 (Version None)
Quarter: 2007Q1

REPORT INFORMATION
  Report Type: 
  Country: None (occurrence: None)
  Receive Date: 20070314
  Receipt Date: 20070228
  Transmission Date: 20070707
  Serious: Yes (Hospitalization, Other)
  Sender: FDA-Public Use
  Company Number: US-ELI_LILLY_AND_COMPANY-US_0404102075

PATIENT
  Age: 15 Year
  Sex: Male
  Weight: 54 kg

DRUGS (4)
  1. ATOMOXETINE HYDROCHLORIDE [Suspect]
     Indication: ATTENTION DEFICIT/HYPERACTIVITY DISORDER
     Dosage: 1200 MG, UNKNOWN
  2. BUPROPION HCL [Concomitant]
     Dosage: 150 MG, 2/D
  3. RISPERIDONE [Concomitant]
     Dosage: 0.25 MG, 2/D
  4. ALPRAZOLAM [Concomitant]
     Dosage: 0.25 MG, AS NEEDED

REACTIONS (11)
  - ANXIETY [None]
  - CONFUSIONAL STATE [None]
  - CONVULSION [None]
  - DEPRESSION [None]
  - DRUG EFFECT DECREASED [None]
  - DRUG INEFFECTIVE [None]
  - DRY MOUTH [None]
  - ELECTROCARDIOGRAM QT CORRECTED INTERVAL PROLONGED [None]
  - HEART RATE INCREASED [None]
  - INTENTIONAL OVERDOSE [None]
  - TREMOR [None]
